FAERS Safety Report 8859572 (Version 1)
Quarter: 2012Q4

REPORT INFORMATION
  Report Type: Spontaneous
  Country: TR (occurrence: None)
  Receive Date: 20121022
  Receipt Date: 20121022
  Transmission Date: 20130627
  Serious: Yes (Other)
  Sender: FDA-Public Use
  Company Number: FK201203055

PATIENT
  Age: 40 Year
  Sex: Female

DRUGS (2)
  1. METHYLPREDNISOLONE [Suspect]
     Indication: MULTIPLE SCLEROSIS
     Dosage: 1 gm,  Intravenous  (not otherwise specified)
     Route: 042
  2. ACETAZOLAMID (ACETAZOLAMIDE) [Concomitant]

REACTIONS (3)
  - Chorioretinopathy [None]
  - Blindness unilateral [None]
  - Detachment of macular retinal pigment epithelium [None]
